FAERS Safety Report 7156374-4 (Version None)
Quarter: 2010Q4

REPORT INFORMATION
  Report Type: 
  Country: None (occurrence: None)
  Receive Date: 20101214
  Receipt Date: 20101206
  Transmission Date: 20110411
  Serious: Yes (Other)
  Sender: FDA-Public Use
  Company Number: CA-JNJCH-2010028002

PATIENT
  Age: 22 Year
  Sex: Male
  Weight: 61.2 kg

DRUGS (1)
  1. BENADRYL [Suspect]
     Indication: SEASONAL ALLERGY
     Dosage: TEXT:ONE CAPSULE ONCE
     Route: 048

REACTIONS (1)
  - BLINDNESS TRANSIENT [None]
